FAERS Safety Report 18325833 (Version 1)
Quarter: 2020Q3

REPORT INFORMATION
  Report Type: Spontaneous
  Country: US (occurrence: US)
  Receive Date: 20200929
  Receipt Date: 20200929
  Transmission Date: 20201103
  Serious: Yes (Death)
  Sender: FDA-Public Use
  Company Number: US-ASTRAZENECA-2020SF23916

PATIENT
  Age: 90 Year
  Sex: Male

DRUGS (1)
  1. FARXIGA [Suspect]
     Active Substance: DAPAGLIFLOZIN PROPANEDIOL
     Indication: ILL-DEFINED DISORDER
     Dosage: 10.0MG UNKNOWN
     Route: 048

REACTIONS (1)
  - Completed suicide [Fatal]
